FAERS Safety Report 7405362-9 (Version None)
Quarter: 2011Q2

REPORT INFORMATION
  Report Type: 
  Country: None (occurrence: None)
  Receive Date: 20110411
  Receipt Date: 20110401
  Transmission Date: 20111010
  Serious: Yes (Hospitalization)
  Sender: FDA-Public Use
  Company Number: PHHY2011US26456

PATIENT
  Sex: Female
  Weight: 50.9 kg

DRUGS (1)
  1. TOBI [Suspect]
     Indication: CYSTIC FIBROSIS
     Dosage: 300 MG, BID
     Dates: start: 19990101

REACTIONS (20)
  - STAPHYLOCOCCAL BACTERAEMIA [None]
  - PANCREATITIS ACUTE [None]
  - PLEURAL EFFUSION [None]
  - LUNG DISORDER [None]
  - CREPITATIONS [None]
  - MALNUTRITION [None]
  - COUGH [None]
  - GASTROOESOPHAGEAL REFLUX DISEASE [None]
  - CYSTIC FIBROSIS [None]
  - LUNG INFECTION PSEUDOMONAL [None]
  - CLUBBING [None]
  - PANCREATIC INSUFFICIENCY [None]
  - GLUCOSE TOLERANCE IMPAIRED [None]
  - PRODUCTIVE COUGH [None]
  - PULMONARY FUNCTION TEST DECREASED [None]
  - BRONCHIECTASIS [None]
  - PANCREATITIS CHRONIC [None]
  - FATIGUE [None]
  - ASTHMA [None]
  - OEDEMA [None]
